FAERS Safety Report 6066126-4 (Version None)
Quarter: 2009Q1

REPORT INFORMATION
  Report Type: 
  Country: None (occurrence: None)
  Receive Date: 20090130
  Receipt Date: 20090121
  Transmission Date: 20090719
  Serious: Yes (Life-Threatening)
  Sender: FDA-Public Use
  Company Number: 1000003690

PATIENT
  Age: 57 Year
  Sex: Female
  Weight: 50 kg

DRUGS (3)
  1. CITALOPRAM HYDROBROMIDE [Suspect]
     Dosage: 30 MG (30 MG, 1 IN 1 D), ORAL : 20 MG (20 MG, 1 IN 1 D), ORAL
     Route: 048
     Dates: start: 19970616, end: 19970618
  2. CITALOPRAM HYDROBROMIDE [Suspect]
     Dosage: 30 MG (30 MG, 1 IN 1 D), ORAL : 20 MG (20 MG, 1 IN 1 D), ORAL
     Route: 048
     Dates: start: 19970619, end: 19970626
  3. TRUXAL [Suspect]
     Dosage: 50 MG (50 MG, 1 IN 1 D), ORAL
     Route: 048
     Dates: start: 19970618, end: 19970626

REACTIONS (3)
  - BRAIN OEDEMA [None]
  - GRAND MAL CONVULSION [None]
  - HYPONATRAEMIA [None]
